FAERS Safety Report 6440636-X (Version None)
Quarter: 2009Q4

REPORT INFORMATION
  Report Type: 
  Country: None (occurrence: None)
  Receive Date: 20091116
  Receipt Date: 20091102
  Transmission Date: 20100525
  Serious: Yes (Hospitalization, Other)
  Sender: FDA-Public Use
  Company Number: PHBS2006IE19853

PATIENT
  Age: 11 Year
  Sex: Male

DRUGS (8)
  1. SIMULECT [Suspect]
     Indication: RENAL TRANSPLANT
     Dosage: 20 MG, ONCE/SINGLE
     Route: 042
     Dates: start: 20061125, end: 20061125
  2. CELLCEPT [Suspect]
     Indication: RENAL TRANSPLANT
     Dosage: 250 MG, BID
     Dates: start: 20061204
  3. PROGRAF [Concomitant]
  4. METHYLPREDNISOLONE [Concomitant]
     Indication: RENAL TRANSPLANT
  5. STEROIDS NOS [Concomitant]
  6. AZATHIOPRINE [Concomitant]
  7. RANITIDINE [Concomitant]
  8. ANTIBIOTICS [Concomitant]

REACTIONS (12)
  - ACUTE RESPIRATORY DISTRESS SYNDROME [None]
  - ANGIOPATHY [None]
  - C-REACTIVE PROTEIN INCREASED [None]
  - DIALYSIS [None]
  - MECHANICAL VENTILATION [None]
  - NON-CARDIOGENIC PULMONARY OEDEMA [None]
  - PYREXIA [None]
  - RENAL FAILURE [None]
  - RENAL TUBULAR NECROSIS [None]
  - RESPIRATORY DISTRESS [None]
  - THROMBOTIC MICROANGIOPATHY [None]
  - TRANSPLANT REJECTION [None]
